FAERS Safety Report 16819135 (Version 5)
Quarter: 2020Q4

REPORT INFORMATION
  Report Type: Report from Study
  Country: TW (occurrence: TW)
  Receive Date: 20190917
  Receipt Date: 20201022
  Transmission Date: 20210113
  Serious: Yes (Death, Life-Threatening, Hospitalization)
  Sender: FDA-Public Use
  Company Number: TW-CELGENEUS-TWN-20190904232

PATIENT
  Age: 65 Year
  Sex: Male

DRUGS (48)
  1. MEDI4736 [Suspect]
     Active Substance: DURVALUMAB
     Indication: NON-SMALL CELL LUNG CANCER STAGE IV
     Route: 042
     Dates: start: 20190723, end: 20190723
  2. RASITOL [Concomitant]
     Indication: ASCITES
     Dosage: 40 MILLIGRAM
     Route: 048
     Dates: start: 20190731
  3. NEBILET [Concomitant]
     Active Substance: NEBIVOLOL
     Dosage: 5 MILLIGRAM
     Route: 048
     Dates: start: 20190731, end: 20190817
  4. FAMOTIDINE. [Concomitant]
     Active Substance: FAMOTIDINE
     Indication: ABDOMINAL DISTENSION
     Dosage: 20 MILLIGRAM
     Route: 048
     Dates: start: 20190803, end: 20190803
  5. PIPERCILLIN/TAZOBACTAM [Concomitant]
     Active Substance: PIPERACILLIN SODIUM\TAZOBACTAM SODIUM
     Indication: PNEUMONITIS
     Dosage: 4500 MILLIGRAM
     Route: 048
     Dates: start: 20190729, end: 20190729
  6. ZODENOX [Concomitant]
     Indication: INSOMNIA
     Dosage: 10 MILLIGRAM
     Route: 048
     Dates: start: 20190629, end: 20190703
  7. SPIRONOLACTONE. [Concomitant]
     Active Substance: SPIRONOLACTONE
     Indication: HYPERTENSION
     Dosage: 50 MILLIGRAM
     Route: 048
     Dates: start: 20190629, end: 20190803
  8. DEXAMETHASONE. [Concomitant]
     Active Substance: DEXAMETHASONE
     Indication: PREMEDICATION
     Dosage: 10 MILLIGRAM
     Route: 042
     Dates: start: 20190723, end: 20190723
  9. PALONOSETRON. [Concomitant]
     Active Substance: PALONOSETRON HYDROCHLORIDE
     Indication: PREMEDICATION
     Dosage: 25 MILLIGRAM
     Route: 042
     Dates: start: 20190723, end: 20190723
  10. POTASSIUM GLUCONATE [Concomitant]
     Active Substance: POTASSIUM GLUCONATE
     Indication: HYPOKALAEMIA
     Dosage: 20 MILL EQUIVALENTS
     Route: 048
     Dates: start: 20190803, end: 20190803
  11. LACTULOSE. [Concomitant]
     Active Substance: LACTULOSE
     Dosage: 60 MILLILITER
     Route: 048
     Dates: start: 20190807, end: 20190808
  12. LACTULOSE. [Concomitant]
     Active Substance: LACTULOSE
     Dosage: 30 MILLILITER
     Route: 048
     Dates: start: 20190808, end: 20190813
  13. RASITOL [Concomitant]
     Dosage: 20 MILLIGRAM
     Route: 041
     Dates: start: 20190803, end: 20190803
  14. TRANSAMIN [Concomitant]
     Active Substance: TRANEXAMIC ACID
     Dosage: 250 MILLIGRAM
     Route: 042
     Dates: start: 20190730, end: 20190806
  15. MEDICON-A [Concomitant]
     Indication: HAEMOPTYSIS
     Dosage: 60 MILLIGRAM
     Route: 048
     Dates: start: 20190703, end: 20190813
  16. VERAPAMIL HYDROCHLORIDE. [Concomitant]
     Active Substance: VERAPAMIL HYDROCHLORIDE
     Indication: HYPERTENSION
     Route: 065
     Dates: start: 20190629
  17. DILTIAZEM. [Concomitant]
     Active Substance: DILTIAZEM
     Indication: SINUS TACHYCARDIA
     Dosage: 90 MILLIGRAM
     Route: 048
     Dates: start: 20190731
  18. SPIRONOLACTONE. [Concomitant]
     Active Substance: SPIRONOLACTONE
     Dosage: 50 MILLIGRAM
     Route: 048
     Dates: start: 20190813
  19. ACTEIN [Concomitant]
     Indication: SPUTUM DECREASED
     Dosage: 1200 MILLIGRAM
     Route: 048
     Dates: start: 20190629, end: 20190728
  20. ACTEIN [Concomitant]
     Dosage: 1200 MILLIGRAM
     Route: 048
     Dates: start: 20190730, end: 20190813
  21. DEXAMETHASONE. [Concomitant]
     Active Substance: DEXAMETHASONE
     Dosage: 20 MILLIGRAM
     Route: 042
     Dates: start: 20190723, end: 20190723
  22. CONCOR [Concomitant]
     Active Substance: BISOPROLOL FUMARATE
     Indication: SINUS TACHYCARDIA
     Dosage: 1.25 MILLIGRAM
     Route: 048
     Dates: start: 20190731, end: 20190731
  23. FAMOTIDINE. [Concomitant]
     Active Substance: FAMOTIDINE
     Dosage: 40 MILLIGRAM
     Route: 048
     Dates: start: 20190803
  24. LACTULOSE. [Concomitant]
     Active Substance: LACTULOSE
     Indication: JAUNDICE
     Dosage: 30 MILLILITER
     Route: 048
     Dates: start: 20190731, end: 20190802
  25. LACTULOSE. [Concomitant]
     Active Substance: LACTULOSE
     Dosage: 90 MILLILITER
     Route: 048
     Dates: start: 20190813
  26. RASITOL [Concomitant]
     Dosage: 40 MILLIGRAM
     Route: 048
     Dates: start: 20190813, end: 20190813
  27. PARAMOL [Concomitant]
     Indication: CHEST PAIN
     Dosage: 1500 MILLIGRAM
     Route: 048
     Dates: start: 20190730, end: 20190813
  28. SPIRONOLACTONE. [Concomitant]
     Active Substance: SPIRONOLACTONE
     Dosage: 50 MILLIGRAM
     Route: 048
     Dates: start: 20190731, end: 20190810
  29. HERBESSER [Concomitant]
     Active Substance: DILTIAZEM HYDROCHLORIDE
     Dosage: 30 MILLIGRAM
     Route: 048
     Dates: start: 20190810
  30. POTASSIUM CHLORIDE. [Concomitant]
     Active Substance: POTASSIUM CHLORIDE
     Indication: HYPOKALAEMIA
     Route: 042
     Dates: start: 20190802, end: 20190803
  31. NAB-PACLITAXEL [Suspect]
     Active Substance: PACLITAXEL
     Indication: NON-SMALL CELL LUNG CANCER STAGE IV
     Route: 041
     Dates: start: 20190723, end: 20190723
  32. NEBILET [Concomitant]
     Active Substance: NEBIVOLOL
     Indication: HYPERTENSION
     Dosage: 5 MILLIGRAM
     Route: 048
     Dates: start: 20190629, end: 20190703
  33. RASITOL [Concomitant]
     Indication: HYPERTENSION
     Dosage: 40 MILLIGRAM
     Route: 048
     Dates: start: 20190629, end: 20190703
  34. TRANSAMIN [Concomitant]
     Active Substance: TRANEXAMIC ACID
     Dosage: 750 MILLIGRAM
     Route: 042
     Dates: start: 20190730, end: 20190806
  35. MEGEST [Concomitant]
     Indication: DECREASED APPETITE
     Dosage: 320 MILLIGRAM
     Route: 048
     Dates: start: 20190703, end: 20190813
  36. EMEND [Concomitant]
     Active Substance: APREPITANT
     Indication: PROPHYLAXIS OF NAUSEA AND VOMITING
     Dosage: 80 MILLIGRAM
     Route: 048
     Dates: start: 20190724, end: 20190728
  37. METOCLOPRAMIDE. [Concomitant]
     Active Substance: METOCLOPRAMIDE
     Dosage: 15 MILLIGRAM
     Route: 048
     Dates: start: 20190813
  38. POTASSIUM GLUCONATE [Concomitant]
     Active Substance: POTASSIUM GLUCONATE
     Dosage: 40 MILL EQUIVALENTS
     Route: 048
     Dates: start: 20190803, end: 20190805
  39. ACETAMOL [Concomitant]
     Active Substance: ACETAMINOPHEN
     Indication: PNEUMONITIS
     Dosage: 1 GRAM
     Route: 041
     Dates: start: 20190729, end: 20190729
  40. ENCORE [Concomitant]
     Indication: INCREASED VISCOSITY OF UPPER RESPIRATORY SECRETION
     Dosage: 300 MILLIGRAM
     Route: 055
     Dates: start: 20190729, end: 20190729
  41. CARBOPLATIN. [Suspect]
     Active Substance: CARBOPLATIN
     Indication: NON-SMALL CELL LUNG CANCER STAGE IV
     Dosage: 622.3 MG
     Route: 041
     Dates: start: 20190723, end: 20190723
  42. TRANSAMIN [Concomitant]
     Active Substance: TRANEXAMIC ACID
     Indication: HAEMOPTYSIS
     Dosage: 750 MILLIGRAM
     Route: 048
     Dates: start: 20190703, end: 20190729
  43. NOVAMIN [Concomitant]
     Indication: PREMEDICATION
     Dosage: 15 MILLIGRAM
     Route: 048
     Dates: start: 20190724, end: 20190728
  44. METOCLOPRAMIDE. [Concomitant]
     Active Substance: METOCLOPRAMIDE
     Indication: PREMEDICATION
     Dosage: 15 MILLIGRAM
     Route: 048
     Dates: start: 20190724, end: 20190728
  45. HERBESSER [Concomitant]
     Active Substance: DILTIAZEM HYDROCHLORIDE
     Indication: SINUS TACHYCARDIA
     Dosage: 30 MILLIGRAM
     Route: 048
     Dates: start: 20190731, end: 20190731
  46. HERBESSER [Concomitant]
     Active Substance: DILTIAZEM HYDROCHLORIDE
     Dosage: 90 MILLIGRAM
     Route: 048
     Dates: start: 20190731
  47. ACETAMINOPHEN. [Concomitant]
     Active Substance: ACETAMINOPHEN
     Indication: PROPHYLAXIS
     Dosage: 500 MILLIGRAM
     Route: 048
     Dates: start: 20190725, end: 20190729
  48. TRANSAMIN [Concomitant]
     Active Substance: TRANEXAMIC ACID
     Dosage: 500 MILLIGRAM
     Route: 042
     Dates: start: 20190806, end: 20190812

REACTIONS (2)
  - Hepatic failure [Fatal]
  - Drug-induced liver injury [Not Recovered/Not Resolved]

NARRATIVE: CASE EVENT DATE: 20190802
